FAERS Safety Report 23834863 (Version 1)
Quarter: 2024Q2

REPORT INFORMATION
  Report Type: Report from Study
  Country: CH (occurrence: CH)
  Receive Date: 20240509
  Receipt Date: 20240509
  Transmission Date: 20240716
  Serious: Yes (Hospitalization, Other)
  Sender: FDA-Public Use
  Company Number: CH-ABBVIE-5736138

PATIENT
  Sex: Female

DRUGS (5)
  1. CARBIDOPA\LEVODOPA [Suspect]
     Active Substance: CARBIDOPA\LEVODOPA
     Indication: Parkinson^s disease
     Dosage: FREQUENCY TEXT: 16H THERAPY?DRUG END DATE  APR 2024
     Route: 050
     Dates: start: 20240410
  2. CARBIDOPA\LEVODOPA [Suspect]
     Active Substance: CARBIDOPA\LEVODOPA
     Dosage: MD: 5.0ML, CRD: 1.5 ML/H, ED: 1.0 ML, CRD: 1.2 ML/H?FREQUENCY TEXT: 24H THERAPY
     Route: 050
     Dates: start: 20240424, end: 20240505
  3. CARBIDOPA\LEVODOPA [Suspect]
     Active Substance: CARBIDOPA\LEVODOPA
     Dosage: MD: 5.5ML, CRD: 1.2 ML/H, ED: 1.0 ML,
     Route: 050
     Dates: start: 20240423, end: 20240424
  4. BENSERAZIDE HYDROCHLORIDE\LEVODOPA [Concomitant]
     Active Substance: BENSERAZIDE HYDROCHLORIDE\LEVODOPA
     Indication: Product used for unknown indication
     Dosage: FREQUENCY TEXT: 1 TABLET EVERY 2 HOURS
     Route: 048
     Dates: start: 20240505, end: 20240505
  5. BENSERAZIDE HYDROCHLORIDE\LEVODOPA [Concomitant]
     Active Substance: BENSERAZIDE HYDROCHLORIDE\LEVODOPA
     Indication: Product used for unknown indication
     Dosage: 125 MILLIGRAM,?FREQUENCY TEXT: 0.75 TABLET EVERY 2 HOURS
     Route: 048
     Dates: start: 20240505

REACTIONS (25)
  - Intestinal perforation [Not Recovered/Not Resolved]
  - Abdominal pain [Not Recovered/Not Resolved]
  - Peritonitis [Not Recovered/Not Resolved]
  - Tachypnoea [Not Recovered/Not Resolved]
  - Ileus [Not Recovered/Not Resolved]
  - Respiratory rate increased [Not Recovered/Not Resolved]
  - Hospitalisation [Not Recovered/Not Resolved]
  - Pain [Not Recovered/Not Resolved]
  - Flank pain [Not Recovered/Not Resolved]
  - Akinesia [Not Recovered/Not Resolved]
  - Pneumoperitoneum [Not Recovered/Not Resolved]
  - Tachycardia [Not Recovered/Not Resolved]
  - Abdominal rigidity [Not Recovered/Not Resolved]
  - Facial pain [Unknown]
  - Therapeutic product effect incomplete [Unknown]
  - Cachexia [Not Recovered/Not Resolved]
  - Device loosening [Recovered/Resolved]
  - Muscle rigidity [Not Recovered/Not Resolved]
  - General physical health deterioration [Not Recovered/Not Resolved]
  - Dyskinesia [Recovered/Resolved]
  - Stoma site discharge [Not Recovered/Not Resolved]
  - Movement disorder [Unknown]
  - Somnolence [Not Recovered/Not Resolved]
  - C-reactive protein abnormal [Unknown]
  - Palliative care [Not Recovered/Not Resolved]

NARRATIVE: CASE EVENT DATE: 20240101
